FAERS Safety Report 24963244 (Version 1)
Quarter: 2025Q1

REPORT INFORMATION
  Report Type: Spontaneous
  Country: CN (occurrence: CN)
  Receive Date: 20250213
  Receipt Date: 20250213
  Transmission Date: 20250408
  Serious: Yes (Hospitalization, Other)
  Sender: EMD SERONO INC
  Company Number: CN-Merck Healthcare KGaA-2025006074

PATIENT
  Age: 34 Year
  Sex: Female
  Weight: 58 kg

DRUGS (3)
  1. LUVERIS [Suspect]
     Active Substance: LUTROPIN ALFA
     Indication: Ovulation induction
     Dates: start: 20250104, end: 20250109
  2. OVIDREL [Suspect]
     Active Substance: CHORIOGONADOTROPIN ALFA
     Indication: Ovulation induction
     Dates: start: 20250110, end: 20250110
  3. FOLLITROPIN BETA [Suspect]
     Active Substance: FOLLITROPIN BETA
     Indication: Ovulation induction
     Dates: start: 20241210, end: 20250131

REACTIONS (1)
  - Ovarian hyperstimulation syndrome [Not Recovered/Not Resolved]

NARRATIVE: CASE EVENT DATE: 20250123
